FAERS Safety Report 18851736 (Version 2)
Quarter: 2021Q1

REPORT INFORMATION
  Report Type: Spontaneous
  Country: US (occurrence: US)
  Receive Date: 20210205
  Receipt Date: 20210319
  Transmission Date: 20210420
  Serious: No
  Sender: FDA-Public Use
  Company Number: NVSC2021US019566

PATIENT
  Sex: Female

DRUGS (2)
  1. COSENTYX [Suspect]
     Active Substance: SECUKINUMAB
     Indication: PSORIATIC ARTHROPATHY
     Dosage: 150 MG (4 WEEKS 2 PENS)
     Route: 065
     Dates: start: 20210122
  2. COSENTYX [Suspect]
     Active Substance: SECUKINUMAB
     Indication: PSORIASIS
     Dosage: 150 MG (4 WEEKS 2 PENS)
     Route: 065

REACTIONS (3)
  - Alopecia [Unknown]
  - Arthralgia [Unknown]
  - Skin plaque [Unknown]
